FAERS Safety Report 12540084 (Version 1)
Quarter: 2016Q3

REPORT INFORMATION
  Report Type: Spontaneous
  Country: FR (occurrence: FR)
  Receive Date: 20160708
  Receipt Date: 20160708
  Transmission Date: 20161109
  Serious: Yes (Other)
  Sender: FDA-Public Use
  Company Number: FR-CIPLA LTD.-2013FR00947

PATIENT

DRUGS (4)
  1. GEMCITABINE [Suspect]
     Active Substance: GEMCITABINE\GEMCITABINE HYDROCHLORIDE
     Indication: BLADDER CANCER
     Dosage: 15 MG/M2, TWICE WEEKLY STARTING DOSE
     Route: 042
  2. GEMCITABINE [Suspect]
     Active Substance: GEMCITABINE\GEMCITABINE HYDROCHLORIDE
     Dosage: 30 MG/M2, TWICE WEEKLY
     Route: 042
  3. CISPLATIN. [Suspect]
     Active Substance: CISPLATIN
     Indication: BLADDER CANCER
     Dosage: 20 MG/M2/DAY OVER 4 DAYS IN EACH 21 DAYS CYCLE
     Route: 042
  4. GEMCITABINE [Suspect]
     Active Substance: GEMCITABINE\GEMCITABINE HYDROCHLORIDE
     Dosage: DOSE ESCALATION OF 5 MG/M2 ONCE IN TWO WEEKS
     Route: 042

REACTIONS (3)
  - Atrial fibrillation [Unknown]
  - Generalised oedema [Unknown]
  - Performance status decreased [Unknown]
